FAERS Safety Report 14660190 (Version 1)
Quarter: 2018Q1

REPORT INFORMATION
  Report Type: Spontaneous
  Country: US (occurrence: US)
  Receive Date: 20180320
  Receipt Date: 20180320
  Transmission Date: 20180509
  Serious: No
  Sender: FDA-Public Use
  Company Number: US-BAYER-2018-046692

PATIENT
  Age: 69 Year
  Sex: Male
  Weight: 67.98 kg

DRUGS (2)
  1. BAYER ASPIRIN [Suspect]
     Active Substance: ASPIRIN
     Dosage: 1 DF, PRN
     Route: 048
     Dates: start: 201803
  2. ALEVE [Suspect]
     Active Substance: NAPROXEN SODIUM
     Dosage: 1 DF, PRN
     Route: 048
     Dates: start: 20180307

REACTIONS (4)
  - Drug effect incomplete [Unknown]
  - Drug effect incomplete [Unknown]
  - Drug effect incomplete [Unknown]
  - Therapeutic response unexpected [Unknown]

NARRATIVE: CASE EVENT DATE: 201803
